FAERS Safety Report 23054298 (Version 1)
Quarter: 2023Q4

REPORT INFORMATION
  Report Type: Spontaneous
  Country: US (occurrence: None)
  Receive Date: 20231010
  Receipt Date: 20231010
  Transmission Date: 20240109
  Serious: Yes (Life-Threatening, Hospitalization, Disabling)
  Sender: FDA-Public Use
  Company Number: None

PATIENT
  Age: 64 Year
  Sex: Male
  Weight: 61.65 kg

DRUGS (11)
  1. JARDIANCE [Suspect]
     Active Substance: EMPAGLIFLOZIN
     Indication: Type 2 diabetes mellitus
     Dates: start: 20230525, end: 20230627
  2. ATORVASTATIN [Concomitant]
  3. FAMOTIDINE [Concomitant]
  4. INSULIN GLARGINE [Concomitant]
     Active Substance: INSULIN GLARGINE
  5. LEVOTHYROXINE [Concomitant]
     Active Substance: LEVOTHYROXINE
  6. LOSARTAN [Concomitant]
  7. metforminxr [Concomitant]
  8. metoprolol succinatexl [Concomitant]
  9. mounjaro [Concomitant]
  10. ovar redihaler [Concomitant]
  11. TAMSULOSIN [Concomitant]

REACTIONS (2)
  - Blood urine present [None]
  - Bacterial sepsis [None]

NARRATIVE: CASE EVENT DATE: 20230627
